FAERS Safety Report 10962665 (Version 2)
Quarter: 2015Q1

REPORT INFORMATION
  Report Type: Report from Study
  Country: ES (occurrence: ES)
  Receive Date: 20150327
  Receipt Date: 20150330
  Transmission Date: 20150721
  Serious: Yes (Hospitalization)
  Sender: FDA-Public Use
  Company Number: ES-EISAI MEDICAL RESEARCH-EC-2015-005146

PATIENT
  Sex: Female

DRUGS (4)
  1. VALPROICO ACIDO [Concomitant]
     Indication: SEIZURE
     Route: 048
  2. FYCOMPA [Suspect]
     Active Substance: PERAMPANEL
     Indication: SEIZURE
     Route: 048
     Dates: start: 20140509, end: 20140730
  3. ZONISAMIDE. [Concomitant]
     Active Substance: ZONISAMIDE
     Route: 048
  4. RIVOTRIL 0,5 MG COMPRIMIDOS , 60 COMPRIMIDOS [Concomitant]
     Indication: SEIZURE
     Route: 048

REACTIONS (2)
  - Hallucination [Recovered/Resolved]
  - Aggression [Recovered/Resolved]

NARRATIVE: CASE EVENT DATE: 20140612
